FAERS Safety Report 6592967-0 (Version None)
Quarter: 2010Q1

REPORT INFORMATION
  Report Type: 
  Country: None (occurrence: None)
  Receive Date: 20100218
  Receipt Date: 20100218
  Transmission Date: 20100710
  Serious: Yes (Other)
  Sender: FDA-Public Use
  Company Number: None

PATIENT
  Age: 55 Year
  Sex: Female
  Weight: 74.8435 kg

DRUGS (3)
  1. TRILIPIX [Suspect]
     Indication: HYPERCHOLESTEROLAEMIA
     Dosage: 135 MG. TAKE ONE AT DINNER PO
     Route: 048
     Dates: start: 20100210, end: 20100214
  2. TRILIPIX [Suspect]
     Indication: HYPERTRIGLYCERIDAEMIA
     Dosage: 135 MG. TAKE ONE AT DINNER PO
     Route: 048
     Dates: start: 20100210, end: 20100214
  3. TRILIPIX [Concomitant]

REACTIONS (3)
  - ABDOMINAL PAIN [None]
  - MYALGIA [None]
  - PAIN [None]
